FAERS Safety Report 4793774-1 (Version None)
Quarter: 2005Q4

REPORT INFORMATION
  Report Type: 
  Country: None (occurrence: None)
  Receive Date: 20051011
  Receipt Date: 20050930
  Transmission Date: 20060501
  Serious: Yes (Hospitalization, Disabling)
  Sender: FDA-Public Use
  Company Number: US-JNJFOC-20050906643

PATIENT
  Sex: Male
  Weight: 74.39 kg

DRUGS (6)
  1. REMICADE [Suspect]
     Route: 042
  2. REMICADE [Suspect]
     Indication: CROHN'S DISEASE
     Route: 042
  3. 5-ASA [Concomitant]
  4. ANTIBIOTICS [Concomitant]
  5. 6-MP [Concomitant]
  6. PREDNISONE [Concomitant]

REACTIONS (4)
  - ARTHRALGIA [None]
  - ASTHENIA [None]
  - JOINT SWELLING [None]
  - PARALYSIS [None]
